FAERS Safety Report 7436381-4 (Version None)
Quarter: 2011Q2

REPORT INFORMATION
  Report Type: 
  Country: None (occurrence: None)
  Receive Date: 20110426
  Receipt Date: 20110414
  Transmission Date: 20111010
  Serious: No
  Sender: FDA-Public Use
  Company Number: US-BIOGENIDEC-2011BI009787

PATIENT
  Age: 45 Year
  Sex: Female

DRUGS (1)
  1. TYSABRI [Suspect]
     Indication: MULTIPLE SCLEROSIS
     Route: 042
     Dates: start: 20090730

REACTIONS (6)
  - TEETH BRITTLE [None]
  - PARAESTHESIA [None]
  - NAIL DISORDER [None]
  - BURNING SENSATION [None]
  - HYPOAESTHESIA [None]
  - PYREXIA [None]
